FAERS Safety Report 14502866 (Version 2)
Quarter: 2018Q1

REPORT INFORMATION
  Report Type: Spontaneous
  Country: JP (occurrence: JP)
  Receive Date: 20180208
  Receipt Date: 20180308
  Transmission Date: 20180509
  Serious: Yes (Hospitalization)
  Sender: FDA-Public Use
  Company Number: JP-ORION CORPORATION ORION PHARMA-ENTC2018-0048

PATIENT
  Age: 75 Year
  Sex: Female

DRUGS (8)
  1. MENESIT [Concomitant]
     Active Substance: CARBIDOPA\LEVODOPA
     Route: 065
  2. TRERIEF [Concomitant]
     Active Substance: ZONISAMIDE
     Route: 065
  3. DUODOPA [Concomitant]
     Active Substance: CARBIDOPA\LEVODOPA
     Route: 065
  4. NEUPRO [Concomitant]
     Active Substance: ROTIGOTINE
     Route: 065
  5. AMANTADINE. [Concomitant]
     Active Substance: AMANTADINE HYDROCHLORIDE
     Route: 065
  6. STALEVO [Suspect]
     Active Substance: CARBIDOPA\ENTACAPONE\LEVODOPA
     Indication: PARKINSON^S DISEASE
     Dosage: STRENGTH: 100/10/100 MG
     Route: 048
  7. LEVODOPA [Concomitant]
     Active Substance: LEVODOPA
     Indication: PARKINSON^S DISEASE
     Route: 065
  8. TRERIEF [Concomitant]
     Active Substance: ZONISAMIDE
     Route: 065

REACTIONS (8)
  - Dyskinesia [Recovered/Resolved]
  - Pyrexia [Recovered/Resolved]
  - Constipation [Recovered/Resolved]
  - Therapeutic response shortened [Unknown]
  - Productive cough [Recovered/Resolved]
  - Muscle rigidity [Recovered/Resolved]
  - Orthostatic hypotension [Recovered/Resolved]
  - Dysphagia [Recovered/Resolved]
